FAERS Safety Report 23105184 (Version 1)
Quarter: 2023Q4

REPORT INFORMATION
  Report Type: Spontaneous
  Country: US (occurrence: None)
  Receive Date: 20231023
  Receipt Date: 20231023
  Transmission Date: 20240109
  Serious: Yes (Hospitalization)
  Sender: FDA-Public Use
  Company Number: None

PATIENT
  Age: 74 Year
  Sex: Male

DRUGS (4)
  1. DOFETILIDE [Suspect]
     Active Substance: DOFETILIDE
     Dates: start: 20220920
  2. METOPROLOL SUCCINATE [Suspect]
     Active Substance: METOPROLOL SUCCINATE
     Dates: start: 20220919
  3. ELIQUIS [Suspect]
     Active Substance: APIXABAN
  4. LASIX [Suspect]
     Active Substance: FUROSEMIDE

REACTIONS (5)
  - Bradycardia [None]
  - Dyspnoea exertional [None]
  - Oedema peripheral [None]
  - Dizziness [None]
  - Weight decreased [None]

NARRATIVE: CASE EVENT DATE: 20230405
